FAERS Safety Report 14436724 (Version 1)
Quarter: 2018Q1

REPORT INFORMATION
  Report Type: Spontaneous
  Country: US (occurrence: US)
  Receive Date: 20180125
  Receipt Date: 20180125
  Transmission Date: 20180509
  Serious: No
  Sender: FDA-Public Use
  Company Number: US-UNITED THERAPEUTICS-UNT-2017-006945

PATIENT
  Sex: Female
  Weight: 87.53 kg

DRUGS (3)
  1. ADCIRCA [Concomitant]
     Active Substance: TADALAFIL
     Indication: PRODUCT USED FOR UNKNOWN INDICATION
  2. ORENITRAM [Suspect]
     Active Substance: TREPROSTINIL
     Indication: PULMONARY HYPERTENSION
     Dosage: UNK
     Route: 048
     Dates: start: 20160908
  3. ORENITRAM [Suspect]
     Active Substance: TREPROSTINIL
     Indication: PULMONARY ARTERIAL HYPERTENSION
     Dosage: 5 MG, BID
     Route: 048
     Dates: start: 20160502

REACTIONS (10)
  - Decreased appetite [Unknown]
  - Rhinorrhoea [Unknown]
  - Flushing [Unknown]
  - Dyspnoea exertional [Recovering/Resolving]
  - Diarrhoea [Not Recovered/Not Resolved]
  - Malaise [Unknown]
  - Vomiting [Recovering/Resolving]
  - Sinusitis [Unknown]
  - Dyspepsia [Unknown]
  - Nausea [Recovering/Resolving]

NARRATIVE: CASE EVENT DATE: 2017
